FAERS Safety Report 8975824 (Version 1)
Quarter: 2012Q4

REPORT INFORMATION
  Report Type: 
  Country: US (occurrence: US)
  Receive Date: 20121219
  Receipt Date: 20121219
  Transmission Date: 20130627
  Serious: Yes (Other)
  Sender: FDA-Public Use
  Company Number: CHPA2012US025148

PATIENT
  Age: 77 Year
  Sex: Female

DRUGS (2)
  1. MAALOX ANTACID/ANTIGAS MS LIQ COOL MINT [Suspect]
     Indication: GASTRIC DISORDER
     Dosage: Unk, Unk
     Route: 048
     Dates: start: 1970
  2. DRUG THERAPY NOS [Concomitant]
     Indication: DETOXIFICATION
     Dosage: 36 TSP, QD

REACTIONS (5)
  - Cerebrovascular accident [Unknown]
  - Diarrhoea [Recovered/Resolved]
  - Burning sensation [Unknown]
  - Drug ineffective for unapproved indication [Unknown]
  - Wrong technique in drug usage process [Unknown]
